FAERS Safety Report 8915452 (Version 2)
Quarter: 2013Q1

REPORT INFORMATION
  Report Type: Spontaneous
  Country: US (occurrence: US)
  Receive Date: 20121119
  Receipt Date: 20130306
  Transmission Date: 20140127
  Serious: Yes (Other)
  Sender: FDA-Public Use
  Company Number: US-BAYER-2012-120708

PATIENT
  Age: 69 Year
  Sex: Male
  Weight: 104.31 kg

DRUGS (2)
  1. BAYER ADVANCED ASPIRIN EXTRA STRENGTH [Suspect]
     Indication: PAIN
     Dosage: 2 DF, PRN
     Route: 048
     Dates: start: 201207, end: 20121031
  2. METFORMIN [Concomitant]

REACTIONS (2)
  - Chemical burn of gastrointestinal tract [Recovered/Resolved]
  - Malaise [Recovered/Resolved]
